FAERS Safety Report 9007130 (Version 1)
Quarter: 2013Q1

REPORT INFORMATION
  Report Type: Spontaneous
  Country: US (occurrence: US)
  Receive Date: 20130110
  Receipt Date: 20130110
  Transmission Date: 20140127
  Serious: No
  Sender: FDA-Public Use
  Company Number: US-BAYER-2012-135303

PATIENT
  Age: 48 Year
  Sex: Female

DRUGS (1)
  1. EOVIST [Suspect]
     Indication: NUCLEAR MAGNETIC RESONANCE IMAGING
     Dosage: UNK
     Dates: start: 20121221, end: 20121221

REACTIONS (3)
  - Dizziness [Not Recovered/Not Resolved]
  - Headache [None]
  - Nausea [Not Recovered/Not Resolved]
